FAERS Safety Report 19828251 (Version 1)
Quarter: 2021Q3

REPORT INFORMATION
  Report Type: Spontaneous
  Country: DE (occurrence: DE)
  Receive Date: 20210914
  Receipt Date: 20210914
  Transmission Date: 20211014
  Serious: Yes (Other)
  Sender: FDA-Public Use
  Company Number: DE-TORRENT-00021090

PATIENT
  Age: 40 Year
  Sex: Female
  Weight: 61 kg

DRUGS (3)
  1. ARIPIPRAZOLE. [Suspect]
     Active Substance: ARIPIPRAZOLE
     Indication: SCHIZOPHRENIA
     Dosage: 15 [MG/D ]
     Route: 048
     Dates: start: 20200618, end: 20210329
  2. CLOMIFENE [Concomitant]
     Active Substance: CLOMIPHENE
     Indication: INFERTILITY FEMALE
     Dosage: 50 [MG/D ]
     Route: 048
     Dates: start: 20200619, end: 20200624
  3. TRIMPIRAMIN [Concomitant]
     Indication: SLEEP DISORDER
     Dosage: 10 [MG/D (9) ]
     Route: 048
     Dates: start: 20200618, end: 20200807

REACTIONS (2)
  - Exposure during pregnancy [Unknown]
  - Gestational diabetes [Recovered/Resolved]
